FAERS Safety Report 16794286 (Version 2)
Quarter: 2020Q1

REPORT INFORMATION
  Report Type: Report from Study
  Country: US (occurrence: US)
  Receive Date: 20190911
  Receipt Date: 20200122
  Transmission Date: 20200409
  Serious: No
  Sender: FDA-Public Use
  Company Number: PHEH2019US037256

PATIENT
  Age: 60 Year
  Sex: Female

DRUGS (2)
  1. COSENTYX [Suspect]
     Active Substance: SECUKINUMAB
     Indication: PSORIATIC ARTHROPATHY
     Dosage: 300 MG
     Route: 065
  2. COSENTYX [Suspect]
     Active Substance: SECUKINUMAB
     Indication: PSORIASIS

REACTIONS (6)
  - Headache [Unknown]
  - Vomiting [Unknown]
  - Weight decreased [Unknown]
  - Gait disturbance [Unknown]
  - Influenza like illness [Unknown]
  - Arthralgia [Unknown]

NARRATIVE: CASE EVENT DATE: 202001
